FAERS Safety Report 22056793 (Version 1)
Quarter: 2023Q1

REPORT INFORMATION
  Report Type: Report from Study
  Country: CO (occurrence: CO)
  Receive Date: 20230303
  Receipt Date: 20230303
  Transmission Date: 20230418
  Serious: Yes (Life-Threatening, Hospitalization)
  Sender: FDA-Public Use
  Company Number: CO-ABBVIE-4234344

PATIENT
  Age: 48 Year
  Sex: Male
  Weight: 85 kg

DRUGS (4)
  1. HUMIRA [Suspect]
     Active Substance: ADALIMUMAB
     Indication: Hidradenitis
     Dosage: FORM STRENGTH: 40 MILLIGRAM
     Route: 058
     Dates: start: 20210809
  2. HUMIRA [Suspect]
     Active Substance: ADALIMUMAB
     Route: 058
     Dates: end: 202302
  3. HUMIRA [Suspect]
     Active Substance: ADALIMUMAB
     Route: 058
     Dates: start: 20230225
  4. HUMIRA [Suspect]
     Active Substance: ADALIMUMAB
     Route: 058

REACTIONS (15)
  - Pneumonia viral [Recovered/Resolved]
  - Joint range of motion decreased [Recovering/Resolving]
  - Hidradenitis [Not Recovered/Not Resolved]
  - Therapeutic response shortened [Unknown]
  - Burning sensation [Recovering/Resolving]
  - Furuncle [Recovering/Resolving]
  - Immune system disorder [Unknown]
  - Motor dysfunction [Not Recovered/Not Resolved]
  - Purulent discharge [Recovering/Resolving]
  - Memory impairment [Not Recovered/Not Resolved]
  - Pneumonitis [Recovered/Resolved]
  - Oxygen saturation decreased [Recovered/Resolved]
  - Blister rupture [Recovering/Resolving]
  - Wound [Unknown]
  - Pain [Recovering/Resolving]

NARRATIVE: CASE EVENT DATE: 20230201
